FAERS Safety Report 5847719-3 (Version None)
Quarter: 2008Q3

REPORT INFORMATION
  Report Type: 
  Country: None (occurrence: None)
  Receive Date: 20080815
  Receipt Date: 20080815
  Transmission Date: 20090109
  Serious: Yes (Disabling)
  Sender: FDA-Public Use
  Company Number: None

PATIENT
  Age: 40 Year
  Sex: Female
  Weight: 59.8748 kg

DRUGS (1)
  1. TOPROL-XL [Suspect]
     Indication: MITRAL VALVE PROLAPSE
     Dosage: 1X A DAY
     Dates: start: 19980101, end: 20050501

REACTIONS (4)
  - ASTHENIA [None]
  - HEART RATE DECREASED [None]
  - IMPAIRED WORK ABILITY [None]
  - MUSCLE DISORDER [None]
